FAERS Safety Report 24991593 (Version 1)
Quarter: 2025Q1

REPORT INFORMATION
  Report Type: Spontaneous
  Country: NL (occurrence: NL)
  Receive Date: 20250220
  Receipt Date: 20250220
  Transmission Date: 20250409
  Serious: Yes (Hospitalization)
  Sender: MERCK SHARP & DOHME LLC
  Company Number: NL-AstraZeneca-2025-382482

PATIENT
  Age: 59 Year
  Sex: Male

DRUGS (141)
  1. PEMBROLIZUMAB [Suspect]
     Active Substance: PEMBROLIZUMAB
     Indication: HER2 positive gastric cancer
     Dosage: 200 MG, ONCE EVERY 3 WK
     Dates: start: 20220920, end: 20220920
  2. PEMBROLIZUMAB [Suspect]
     Active Substance: PEMBROLIZUMAB
     Indication: HER2 positive gastric cancer
     Dosage: 200 MG, ONCE EVERY 3 WK
     Dates: start: 20230714, end: 20230714
  3. PEMBROLIZUMAB [Suspect]
     Active Substance: PEMBROLIZUMAB
     Indication: HER2 positive gastric cancer
     Dosage: 200 MG, ONCE EVERY 3 WK
     Dates: start: 20230915, end: 20230915
  4. PEMBROLIZUMAB [Suspect]
     Active Substance: PEMBROLIZUMAB
     Indication: HER2 positive gastric cancer
     Dosage: 200 MG, ONCE EVERY 3 WK
     Dates: start: 20230117, end: 20230117
  5. PEMBROLIZUMAB [Suspect]
     Active Substance: PEMBROLIZUMAB
     Indication: HER2 positive gastric cancer
     Dosage: 200 MG, ONCE EVERY 3 WK
     Dates: start: 20240531, end: 20240531
  6. PEMBROLIZUMAB [Suspect]
     Active Substance: PEMBROLIZUMAB
     Indication: HER2 positive gastric cancer
     Dosage: 200 MG, ONCE EVERY 3 WK
     Dates: start: 20231208, end: 20231208
  7. PEMBROLIZUMAB [Suspect]
     Active Substance: PEMBROLIZUMAB
     Indication: HER2 positive gastric cancer
     Dosage: 200 MG, ONCE EVERY 3 WK
     Dates: start: 20240802, end: 20240802
  8. PEMBROLIZUMAB [Suspect]
     Active Substance: PEMBROLIZUMAB
     Indication: HER2 positive gastric cancer
     Dosage: 200 MG, ONCE EVERY 3 WK
     Dates: start: 20240119, end: 20240119
  9. PEMBROLIZUMAB [Suspect]
     Active Substance: PEMBROLIZUMAB
     Indication: HER2 positive gastric cancer
     Dosage: 200 MG, ONCE EVERY 3 WK
     Dates: start: 20240712, end: 20240712
  10. PEMBROLIZUMAB [Suspect]
     Active Substance: PEMBROLIZUMAB
     Indication: HER2 positive gastric cancer
     Dosage: 200 MG, ONCE EVERY 3 WK
     Dates: start: 20230512, end: 20230512
  11. PEMBROLIZUMAB [Suspect]
     Active Substance: PEMBROLIZUMAB
     Indication: HER2 positive gastric cancer
     Dosage: 200 MG, ONCE EVERY 3 WK
     Dates: start: 20230331, end: 20230331
  12. PEMBROLIZUMAB [Suspect]
     Active Substance: PEMBROLIZUMAB
     Indication: HER2 positive gastric cancer
     Dosage: 200 MG, ONCE EVERY 3 WK
     Dates: start: 20241025, end: 20241025
  13. PEMBROLIZUMAB [Suspect]
     Active Substance: PEMBROLIZUMAB
     Indication: HER2 positive gastric cancer
     Dosage: 200 MG, ONCE EVERY 3 WK
     Dates: start: 20220603, end: 20220603
  14. PEMBROLIZUMAB [Suspect]
     Active Substance: PEMBROLIZUMAB
     Indication: HER2 positive gastric cancer
     Dosage: 200 MG, ONCE EVERY 3 WK
     Dates: start: 20230804, end: 20230804
  15. PEMBROLIZUMAB [Suspect]
     Active Substance: PEMBROLIZUMAB
     Indication: HER2 positive gastric cancer
     Dosage: 200 MG, ONCE EVERY 3 WK
     Dates: start: 20240419, end: 20240419
  16. PEMBROLIZUMAB [Suspect]
     Active Substance: PEMBROLIZUMAB
     Indication: HER2 positive gastric cancer
     Dosage: 200 MG, ONCE EVERY 3 WK
     Dates: start: 20220816, end: 20220816
  17. PEMBROLIZUMAB [Suspect]
     Active Substance: PEMBROLIZUMAB
     Indication: HER2 positive gastric cancer
     Dosage: 200 MG, ONCE EVERY 3 WK
     Dates: start: 20231020, end: 20231020
  18. PEMBROLIZUMAB [Suspect]
     Active Substance: PEMBROLIZUMAB
     Indication: HER2 positive gastric cancer
     Dosage: 200 MG, ONCE EVERY 3 WK
     Dates: start: 20230421, end: 20230421
  19. PEMBROLIZUMAB [Suspect]
     Active Substance: PEMBROLIZUMAB
     Indication: HER2 positive gastric cancer
     Dosage: 200 MG, ONCE EVERY 3 WK
     Dates: start: 20230310, end: 20230310
  20. PEMBROLIZUMAB [Suspect]
     Active Substance: PEMBROLIZUMAB
     Indication: HER2 positive gastric cancer
     Dosage: 200 MG, ONCE EVERY 3 WK
     Dates: start: 20241004, end: 20241004
  21. PEMBROLIZUMAB [Suspect]
     Active Substance: PEMBROLIZUMAB
     Indication: HER2 positive gastric cancer
     Dosage: 200 MG, ONCE EVERY 3 WK
     Dates: start: 20240301, end: 20240301
  22. PEMBROLIZUMAB [Suspect]
     Active Substance: PEMBROLIZUMAB
     Indication: HER2 positive gastric cancer
     Dosage: 200 MG, ONCE EVERY 3 WK
     Dates: start: 20221108, end: 20221108
  23. PEMBROLIZUMAB [Suspect]
     Active Substance: PEMBROLIZUMAB
     Indication: HER2 positive gastric cancer
     Dosage: 200 MG, ONCE EVERY 3 WK
     Dates: start: 20240823, end: 20240823
  24. PEMBROLIZUMAB [Suspect]
     Active Substance: PEMBROLIZUMAB
     Indication: HER2 positive gastric cancer
     Dosage: 200 MG, ONCE EVERY 3 WK
     Dates: start: 20221018, end: 20221018
  25. PEMBROLIZUMAB [Suspect]
     Active Substance: PEMBROLIZUMAB
     Indication: HER2 positive gastric cancer
     Dosage: 200 MG, ONCE EVERY 3 WK
     Dates: start: 20231117, end: 20231117
  26. PEMBROLIZUMAB [Suspect]
     Active Substance: PEMBROLIZUMAB
     Indication: HER2 positive gastric cancer
     Dosage: 200 MG, ONCE EVERY 3 WK
     Dates: start: 20230207, end: 20230207
  27. PEMBROLIZUMAB [Suspect]
     Active Substance: PEMBROLIZUMAB
     Indication: HER2 positive gastric cancer
     Dosage: 200 MG, ONCE EVERY 3 WK
     Dates: start: 20221129, end: 20221129
  28. PEMBROLIZUMAB [Suspect]
     Active Substance: PEMBROLIZUMAB
     Indication: HER2 positive gastric cancer
     Dosage: 200 MG, ONCE EVERY 3 WK
     Dates: start: 20240209, end: 20240209
  29. PEMBROLIZUMAB [Suspect]
     Active Substance: PEMBROLIZUMAB
     Indication: HER2 positive gastric cancer
     Dosage: 200 MG, ONCE EVERY 3 WK
     Dates: start: 20240913, end: 20240913
  30. PEMBROLIZUMAB [Suspect]
     Active Substance: PEMBROLIZUMAB
     Indication: HER2 positive gastric cancer
     Dosage: 200 MG, ONCE EVERY 3 WK
     Dates: start: 20240510, end: 20240510
  31. PEMBROLIZUMAB [Suspect]
     Active Substance: PEMBROLIZUMAB
     Indication: HER2 positive gastric cancer
     Dosage: 200 MG, ONCE EVERY 3 WK
     Dates: start: 20220726, end: 20220726
  32. PEMBROLIZUMAB [Suspect]
     Active Substance: PEMBROLIZUMAB
     Indication: HER2 positive gastric cancer
     Dosage: 200 MG, ONCE EVERY 3 WK
     Dates: start: 20230616, end: 20230616
  33. PEMBROLIZUMAB [Suspect]
     Active Substance: PEMBROLIZUMAB
     Indication: HER2 positive gastric cancer
     Dosage: 200 MG, ONCE EVERY 3 WK
     Dates: start: 20231229, end: 20231229
  34. PEMBROLIZUMAB [Suspect]
     Active Substance: PEMBROLIZUMAB
     Indication: HER2 positive gastric cancer
     Dosage: 200 MG, ONCE EVERY 3 WK
     Dates: start: 20240621, end: 20240621
  35. PEMBROLIZUMAB [Suspect]
     Active Substance: PEMBROLIZUMAB
     Indication: HER2 positive gastric cancer
     Dosage: 200 MG, ONCE EVERY 3 WK
     Dates: start: 20240329, end: 20240329
  36. PEMBROLIZUMAB [Suspect]
     Active Substance: PEMBROLIZUMAB
     Indication: HER2 positive gastric cancer
     Dosage: 200 MG, ONCE EVERY 3 WK
     Dates: start: 20220705, end: 20220705
  37. HYALURONIC ACID [ASCORBIC ACID;HYALURONATE SODIUM] [Concomitant]
     Indication: Dry eye
     Dates: start: 20231229
  38. DESLORATADINE [Concomitant]
     Active Substance: DESLORATADINE
     Indication: Pruritus
     Dosage: 5 MG, ONCE EVERY 12HR
     Route: 065
     Dates: start: 20231030
  39. DEXAMETHASONE SODIUM SUCCINATE [Concomitant]
     Active Substance: DEXAMETHASONE SODIUM SUCCINATE
     Indication: Premedication
     Route: 065
     Dates: start: 20220603
  40. GRANISETRON HYDROCHLORIDE [Concomitant]
     Active Substance: GRANISETRON HYDROCHLORIDE
     Indication: Prophylaxis of nausea and vomiting
     Dosage: 1 MG, ONCE EVERY 12HR
     Route: 065
     Dates: start: 20220603
  41. FAM-TRASTUZUMAB DERUXTECAN-NXKI [Suspect]
     Active Substance: FAM-TRASTUZUMAB DERUXTECAN-NXKI
     Indication: HER2 positive gastric cancer
     Dosage: 4.4 MG/KG, ONCE EVERY 3 WK
     Dates: start: 20231229, end: 20231229
  42. FAM-TRASTUZUMAB DERUXTECAN-NXKI [Suspect]
     Active Substance: FAM-TRASTUZUMAB DERUXTECAN-NXKI
     Indication: HER2 positive gastric cancer
     Dosage: 4.4 MG/KG, ONCE EVERY 3 WK
     Dates: start: 20240209, end: 20240209
  43. FAM-TRASTUZUMAB DERUXTECAN-NXKI [Suspect]
     Active Substance: FAM-TRASTUZUMAB DERUXTECAN-NXKI
     Indication: HER2 positive gastric cancer
     Dosage: 5.4 MG/KG, ONCE EVERY 3 WK
     Dates: start: 20230512, end: 20230512
  44. FAM-TRASTUZUMAB DERUXTECAN-NXKI [Suspect]
     Active Substance: FAM-TRASTUZUMAB DERUXTECAN-NXKI
     Indication: HER2 positive gastric cancer
     Dosage: 6.4 MG/KG, ONCE EVERY 3 WK
     Dates: start: 20220603, end: 20220603
  45. FAM-TRASTUZUMAB DERUXTECAN-NXKI [Suspect]
     Active Substance: FAM-TRASTUZUMAB DERUXTECAN-NXKI
     Indication: HER2 positive gastric cancer
     Dosage: 4.4 MG/KG, ONCE EVERY 3 WK
     Dates: start: 20241004, end: 20241004
  46. FAM-TRASTUZUMAB DERUXTECAN-NXKI [Suspect]
     Active Substance: FAM-TRASTUZUMAB DERUXTECAN-NXKI
     Indication: HER2 positive gastric cancer
     Dosage: 4.4 MG/KG, ONCE EVERY 3 WK
     Dates: start: 20240823, end: 20240823
  47. FAM-TRASTUZUMAB DERUXTECAN-NXKI [Suspect]
     Active Substance: FAM-TRASTUZUMAB DERUXTECAN-NXKI
     Indication: HER2 positive gastric cancer
     Dosage: 5.4 MG/KG, ONCE EVERY 3 WK
     Dates: start: 20221108, end: 20221108
  48. FAM-TRASTUZUMAB DERUXTECAN-NXKI [Suspect]
     Active Substance: FAM-TRASTUZUMAB DERUXTECAN-NXKI
     Indication: HER2 positive gastric cancer
     Dosage: 5.4 MG/KG, ONCE EVERY 3 WK
     Dates: start: 20230117, end: 20230117
  49. FAM-TRASTUZUMAB DERUXTECAN-NXKI [Suspect]
     Active Substance: FAM-TRASTUZUMAB DERUXTECAN-NXKI
     Indication: HER2 positive gastric cancer
     Dosage: 5.4 MG/KG, ONCE EVERY 3 WK
     Dates: start: 20230421, end: 20230421
  50. FAM-TRASTUZUMAB DERUXTECAN-NXKI [Suspect]
     Active Substance: FAM-TRASTUZUMAB DERUXTECAN-NXKI
     Indication: HER2 positive gastric cancer
     Dosage: 4.4 MG/KG, ONCE EVERY 3 WK
     Dates: start: 20241025, end: 20241025
  51. FAM-TRASTUZUMAB DERUXTECAN-NXKI [Suspect]
     Active Substance: FAM-TRASTUZUMAB DERUXTECAN-NXKI
     Indication: HER2 positive gastric cancer
     Dosage: 5.4 MG/KG, ONCE EVERY 3 WK
     Dates: start: 20230714, end: 20230714
  52. FAM-TRASTUZUMAB DERUXTECAN-NXKI [Suspect]
     Active Substance: FAM-TRASTUZUMAB DERUXTECAN-NXKI
     Indication: HER2 positive gastric cancer
     Dosage: 4.4 MG/KG, ONCE EVERY 3 WK
     Dates: start: 20240802, end: 20240802
  53. FAM-TRASTUZUMAB DERUXTECAN-NXKI [Suspect]
     Active Substance: FAM-TRASTUZUMAB DERUXTECAN-NXKI
     Indication: HER2 positive gastric cancer
     Dosage: 4.4 MG/KG, ONCE EVERY 3 WK
     Dates: start: 20240531, end: 20240531
  54. FAM-TRASTUZUMAB DERUXTECAN-NXKI [Suspect]
     Active Substance: FAM-TRASTUZUMAB DERUXTECAN-NXKI
     Indication: HER2 positive gastric cancer
     Dosage: 4.4 MG/KG, ONCE EVERY 3 WK
     Dates: start: 20230915, end: 20230915
  55. FAM-TRASTUZUMAB DERUXTECAN-NXKI [Suspect]
     Active Substance: FAM-TRASTUZUMAB DERUXTECAN-NXKI
     Indication: HER2 positive gastric cancer
     Dosage: 4.4 MG/KG, ONCE EVERY 3 WK
     Dates: start: 20240301, end: 20240301
  56. FAM-TRASTUZUMAB DERUXTECAN-NXKI [Suspect]
     Active Substance: FAM-TRASTUZUMAB DERUXTECAN-NXKI
     Indication: HER2 positive gastric cancer
     Dosage: 4.4 MG/KG, ONCE EVERY 3 WK
     Dates: start: 20240329, end: 20240329
  57. FAM-TRASTUZUMAB DERUXTECAN-NXKI [Suspect]
     Active Substance: FAM-TRASTUZUMAB DERUXTECAN-NXKI
     Indication: HER2 positive gastric cancer
     Dosage: 5.4 MG/KG, ONCE EVERY 3 WK
     Dates: start: 20230804, end: 20230804
  58. FAM-TRASTUZUMAB DERUXTECAN-NXKI [Suspect]
     Active Substance: FAM-TRASTUZUMAB DERUXTECAN-NXKI
     Indication: HER2 positive gastric cancer
     Dosage: 5.4 MG/KG, ONCE EVERY 3 WK
     Dates: start: 20221018, end: 20221018
  59. FAM-TRASTUZUMAB DERUXTECAN-NXKI [Suspect]
     Active Substance: FAM-TRASTUZUMAB DERUXTECAN-NXKI
     Indication: HER2 positive gastric cancer
     Dosage: 4.4 MG/KG, ONCE EVERY 3 WK
     Dates: start: 20240621, end: 20240621
  60. FAM-TRASTUZUMAB DERUXTECAN-NXKI [Suspect]
     Active Substance: FAM-TRASTUZUMAB DERUXTECAN-NXKI
     Indication: HER2 positive gastric cancer
     Dosage: 5.4 MG/KG, ONCE EVERY 3 WK
     Dates: start: 20230616, end: 20230616
  61. FAM-TRASTUZUMAB DERUXTECAN-NXKI [Suspect]
     Active Substance: FAM-TRASTUZUMAB DERUXTECAN-NXKI
     Indication: HER2 positive gastric cancer
     Dosage: 5.4 MG/KG, ONCE EVERY 3 WK
     Dates: start: 20230331, end: 20230331
  62. FAM-TRASTUZUMAB DERUXTECAN-NXKI [Suspect]
     Active Substance: FAM-TRASTUZUMAB DERUXTECAN-NXKI
     Indication: HER2 positive gastric cancer
     Dosage: 6.4 MG/KG, ONCE EVERY 3 WK
     Dates: start: 20220705, end: 20220705
  63. FAM-TRASTUZUMAB DERUXTECAN-NXKI [Suspect]
     Active Substance: FAM-TRASTUZUMAB DERUXTECAN-NXKI
     Indication: HER2 positive gastric cancer
     Dosage: 5.4 MG/KG, ONCE EVERY 3 WK
     Dates: start: 20230310, end: 20230310
  64. FAM-TRASTUZUMAB DERUXTECAN-NXKI [Suspect]
     Active Substance: FAM-TRASTUZUMAB DERUXTECAN-NXKI
     Indication: HER2 positive gastric cancer
     Dosage: 4.4 MG/KG, ONCE EVERY 3 WK
     Dates: start: 20240712, end: 20240712
  65. FAM-TRASTUZUMAB DERUXTECAN-NXKI [Suspect]
     Active Substance: FAM-TRASTUZUMAB DERUXTECAN-NXKI
     Indication: HER2 positive gastric cancer
     Dosage: 4.4 MG/KG, ONCE EVERY 3 WK
     Dates: start: 20240419, end: 20240419
  66. FAM-TRASTUZUMAB DERUXTECAN-NXKI [Suspect]
     Active Substance: FAM-TRASTUZUMAB DERUXTECAN-NXKI
     Indication: HER2 positive gastric cancer
     Dosage: 4.4 MG/KG, ONCE EVERY 3 WK
     Dates: start: 20240119, end: 20240119
  67. FAM-TRASTUZUMAB DERUXTECAN-NXKI [Suspect]
     Active Substance: FAM-TRASTUZUMAB DERUXTECAN-NXKI
     Indication: HER2 positive gastric cancer
     Dosage: 5.4 MG/KG, ONCE EVERY 3 WK
     Dates: start: 20221129, end: 20221129
  68. FAM-TRASTUZUMAB DERUXTECAN-NXKI [Suspect]
     Active Substance: FAM-TRASTUZUMAB DERUXTECAN-NXKI
     Indication: HER2 positive gastric cancer
     Dosage: 5.4 MG/KG, ONCE EVERY 3 WK
     Dates: start: 20220920, end: 20220920
  69. FAM-TRASTUZUMAB DERUXTECAN-NXKI [Suspect]
     Active Substance: FAM-TRASTUZUMAB DERUXTECAN-NXKI
     Indication: HER2 positive gastric cancer
     Dosage: 6.4 MG/KG, ONCE EVERY 3 WK
     Dates: start: 20220816, end: 20220816
  70. FAM-TRASTUZUMAB DERUXTECAN-NXKI [Suspect]
     Active Substance: FAM-TRASTUZUMAB DERUXTECAN-NXKI
     Indication: HER2 positive gastric cancer
     Dosage: 5.4 MG/KG, ONCE EVERY 3 WK
     Dates: start: 20230207, end: 20230207
  71. FAM-TRASTUZUMAB DERUXTECAN-NXKI [Suspect]
     Active Substance: FAM-TRASTUZUMAB DERUXTECAN-NXKI
     Indication: HER2 positive gastric cancer
     Dosage: 4.4 MG/KG, ONCE EVERY 3 WK
     Dates: start: 20231020, end: 20231020
  72. FAM-TRASTUZUMAB DERUXTECAN-NXKI [Suspect]
     Active Substance: FAM-TRASTUZUMAB DERUXTECAN-NXKI
     Indication: HER2 positive gastric cancer
     Dosage: 4.4 MG/KG, ONCE EVERY 3 WK
     Dates: start: 20240913, end: 20240913
  73. FAM-TRASTUZUMAB DERUXTECAN-NXKI [Suspect]
     Active Substance: FAM-TRASTUZUMAB DERUXTECAN-NXKI
     Indication: HER2 positive gastric cancer
     Dosage: 4.4 MG/KG, ONCE EVERY 3 WK
     Dates: start: 20231117, end: 20231117
  74. FAM-TRASTUZUMAB DERUXTECAN-NXKI [Suspect]
     Active Substance: FAM-TRASTUZUMAB DERUXTECAN-NXKI
     Indication: HER2 positive gastric cancer
     Dosage: 6.4 MG/KG, ONCE EVERY 3 WK
     Dates: start: 20220726, end: 20220726
  75. FAM-TRASTUZUMAB DERUXTECAN-NXKI [Suspect]
     Active Substance: FAM-TRASTUZUMAB DERUXTECAN-NXKI
     Indication: HER2 positive gastric cancer
     Dosage: 4.4 MG/KG, ONCE EVERY 3 WK
     Dates: start: 20240510, end: 20240510
  76. FAM-TRASTUZUMAB DERUXTECAN-NXKI [Suspect]
     Active Substance: FAM-TRASTUZUMAB DERUXTECAN-NXKI
     Indication: HER2 positive gastric cancer
     Dosage: 4.4 MG/KG, ONCE EVERY 3 WK
     Dates: start: 20231208, end: 20231208
  77. ACETAMINOPHEN [Concomitant]
     Active Substance: ACETAMINOPHEN
     Indication: Pyrexia
     Dosage: 500 MG, ONCE EVERY 6HR
     Route: 065
     Dates: start: 20220618
  78. CETOMACROGOL;PROPYLPARABEN [Concomitant]
     Indication: Injection site pruritus
     Route: 061
     Dates: start: 20220920
  79. DESOXIMETASONE [Concomitant]
     Active Substance: DESOXIMETASONE
     Indication: Pruritus
     Route: 061
     Dates: start: 20240430
  80. POLYETHYLENE GLYCOLS [Concomitant]
     Active Substance: POLYETHYLENE GLYCOLS
     Indication: Constipation
     Route: 065
     Dates: start: 20220610
  81. CAPECITABINE [Suspect]
     Active Substance: CAPECITABINE
     Indication: HER2 positive gastric cancer
     Dosage: 500 MG/M2, ONCE EVERY 3 WK
     Dates: start: 20231027, end: 20231027
  82. CAPECITABINE [Suspect]
     Active Substance: CAPECITABINE
     Indication: HER2 positive gastric cancer
     Dosage: 500 MG/M2, ONCE EVERY 3 WK
     Dates: start: 20230818, end: 20230818
  83. CAPECITABINE [Suspect]
     Active Substance: CAPECITABINE
     Indication: HER2 positive gastric cancer
     Dosage: 500 MG/M2, ONCE EVERY 3 WK
     Dates: start: 20231021, end: 20231026
  84. CAPECITABINE [Suspect]
     Active Substance: CAPECITABINE
     Indication: HER2 positive gastric cancer
     Dosage: 500 MG/M2, ONCE EVERY 3 WK
     Dates: start: 20231020, end: 20231020
  85. CAPECITABINE [Suspect]
     Active Substance: CAPECITABINE
     Indication: HER2 positive gastric cancer
     Dosage: 500 MG/M2, ONCE EVERY 3 WK
     Dates: start: 20230916, end: 20230928
  86. CAPECITABINE [Suspect]
     Active Substance: CAPECITABINE
     Indication: HER2 positive gastric cancer
     Dosage: 500 MG/M2, ONCE EVERY 3 WK
     Dates: start: 20230929, end: 20230929
  87. CAPECITABINE [Suspect]
     Active Substance: CAPECITABINE
     Indication: HER2 positive gastric cancer
     Dosage: 500 MG/M2, ONCE EVERY 3 WK
     Dates: start: 20230915, end: 20230915
  88. PANTOPRAZOLE SODIUM [Concomitant]
     Active Substance: PANTOPRAZOLE SODIUM
     Indication: Prophylaxis
     Dosage: 40 MG, ONCE EVERY 12HR
     Route: 065
     Dates: start: 20230818
  89. CAPECITABINE [Suspect]
     Active Substance: CAPECITABINE
     Indication: HER2 positive gastric cancer
     Dosage: 500 MG/M2, ONCE EVERY 3 WK
     Dates: start: 20230311, end: 20230323
  90. CAPECITABINE [Suspect]
     Active Substance: CAPECITABINE
     Indication: HER2 positive gastric cancer
     Dosage: 750 MG/M2, ONCE EVERY 3 WK
     Dates: start: 20221213, end: 20221213
  91. CAPECITABINE [Suspect]
     Active Substance: CAPECITABINE
     Indication: HER2 positive gastric cancer
     Dosage: 500 MG/M2, ONCE EVERY 3 WK
     Dates: start: 20230331, end: 20230331
  92. CAPECITABINE [Suspect]
     Active Substance: CAPECITABINE
     Indication: HER2 positive gastric cancer
     Dosage: 500 MG/M2, ONCE EVERY 3 WK
     Dates: start: 20230401, end: 20230413
  93. CAPECITABINE [Suspect]
     Active Substance: CAPECITABINE
     Indication: HER2 positive gastric cancer
     Dosage: 750 MG/M2, ONCE EVERY 3 WK
     Dates: start: 20220921, end: 20221003
  94. CAPECITABINE [Suspect]
     Active Substance: CAPECITABINE
     Indication: HER2 positive gastric cancer
     Dosage: 500 MG/M2, ONCE EVERY 3 WK
     Dates: start: 20230421, end: 20230421
  95. CAPECITABINE [Suspect]
     Active Substance: CAPECITABINE
     Indication: HER2 positive gastric cancer
     Dosage: 750 MG/M2, ONCE EVERY 3 WK
     Dates: start: 20220705, end: 20220705
  96. CAPECITABINE [Suspect]
     Active Substance: CAPECITABINE
     Indication: HER2 positive gastric cancer
     Dosage: 750 MG/M2, ONCE EVERY 3 WK
     Dates: start: 20230221, end: 20230221
  97. CAPECITABINE [Suspect]
     Active Substance: CAPECITABINE
     Indication: HER2 positive gastric cancer
     Dosage: 750 MG/M2, ONCE EVERY 3 WK
     Dates: start: 20220706, end: 20220718
  98. CAPECITABINE [Suspect]
     Active Substance: CAPECITABINE
     Indication: HER2 positive gastric cancer
     Dosage: 750 MG/M2, ONCE EVERY 3 WK
     Dates: start: 20221018, end: 20221018
  99. CAPECITABINE [Suspect]
     Active Substance: CAPECITABINE
     Indication: HER2 positive gastric cancer
     Dosage: 500 MG/M2, ONCE EVERY 3 WK
     Dates: start: 20230617, end: 20230629
  100. CAPECITABINE [Suspect]
     Active Substance: CAPECITABINE
     Indication: HER2 positive gastric cancer
     Dosage: 500 MG/M2, ONCE EVERY 3 WK
     Dates: start: 20230526, end: 20230526
  101. CAPECITABINE [Suspect]
     Active Substance: CAPECITABINE
     Indication: HER2 positive gastric cancer
     Dosage: 750 MG/M2, ONCE EVERY 3 WK
     Dates: start: 20221101, end: 20221101
  102. CAPECITABINE [Suspect]
     Active Substance: CAPECITABINE
     Indication: HER2 positive gastric cancer
     Dosage: 1000 MG/M2, ONCE EVERY 3 WK
     Dates: start: 20220604, end: 20220616
  103. CAPECITABINE [Suspect]
     Active Substance: CAPECITABINE
     Indication: HER2 positive gastric cancer
     Dosage: 500 MG/M2, ONCE EVERY 3 WK
     Dates: start: 20230512, end: 20230512
  104. CAPECITABINE [Suspect]
     Active Substance: CAPECITABINE
     Indication: HER2 positive gastric cancer
     Dosage: 750 MG/M2, ONCE EVERY 3 WK
     Dates: start: 20230117, end: 20230117
  105. CAPECITABINE [Suspect]
     Active Substance: CAPECITABINE
     Indication: HER2 positive gastric cancer
     Dosage: 750 MG/M2, ONCE EVERY 3 WK
     Dates: start: 20220817, end: 20220829
  106. CAPECITABINE [Suspect]
     Active Substance: CAPECITABINE
     Indication: HER2 positive gastric cancer
     Dosage: 750 MG/M2, ONCE EVERY 3 WK
     Dates: start: 20220830, end: 20220830
  107. CAPECITABINE [Suspect]
     Active Substance: CAPECITABINE
     Indication: HER2 positive gastric cancer
     Dosage: 500 MG/M2, ONCE EVERY 3 WK
     Dates: start: 20230728, end: 20230728
  108. CAPECITABINE [Suspect]
     Active Substance: CAPECITABINE
     Indication: HER2 positive gastric cancer
     Dosage: 500 MG/M2, ONCE EVERY 3 WK
     Dates: start: 20230414, end: 20230414
  109. CAPECITABINE [Suspect]
     Active Substance: CAPECITABINE
     Indication: HER2 positive gastric cancer
     Dosage: 500 MG/M2, ONCE EVERY 3 WK
     Dates: start: 20230715, end: 20230727
  110. CAPECITABINE [Suspect]
     Active Substance: CAPECITABINE
     Indication: HER2 positive gastric cancer
     Dosage: 500 MG/M2, ONCE EVERY 3 WK
     Dates: start: 20230630, end: 20230630
  111. CAPECITABINE [Suspect]
     Active Substance: CAPECITABINE
     Indication: HER2 positive gastric cancer
     Dosage: 750 MG/M2, ONCE EVERY 3 WK
     Dates: start: 20221108, end: 20221108
  112. CAPECITABINE [Suspect]
     Active Substance: CAPECITABINE
     Indication: HER2 positive gastric cancer
     Dosage: 1000 MG/M2, ONCE EVERY 3 WK
     Dates: start: 20220617, end: 20220617
  113. CAPECITABINE [Suspect]
     Active Substance: CAPECITABINE
     Indication: HER2 positive gastric cancer
     Dosage: 500 MG/M2, ONCE EVERY 3 WK
     Dates: start: 20230324, end: 20230324
  114. CAPECITABINE [Suspect]
     Active Substance: CAPECITABINE
     Indication: HER2 positive gastric cancer
     Dosage: 750 MG/M2, ONCE EVERY 3 WK
     Dates: start: 20221109, end: 20221121
  115. CAPECITABINE [Suspect]
     Active Substance: CAPECITABINE
     Indication: HER2 positive gastric cancer
     Dosage: 500 MG/M2, ONCE EVERY 3 WK
     Dates: start: 20230805, end: 20230817
  116. CAPECITABINE [Suspect]
     Active Substance: CAPECITABINE
     Indication: HER2 positive gastric cancer
     Dosage: 1000 MG/M2, ONCE EVERY 3 WK
     Dates: start: 20220603, end: 20220603
  117. CAPECITABINE [Suspect]
     Active Substance: CAPECITABINE
     Indication: HER2 positive gastric cancer
     Dosage: 500 MG/M2, ONCE EVERY 3 WK
     Dates: start: 20230310, end: 20230310
  118. CAPECITABINE [Suspect]
     Active Substance: CAPECITABINE
     Indication: HER2 positive gastric cancer
     Dosage: 750 MG/M2, ONCE EVERY 3 WK
     Dates: start: 20230131, end: 20230131
  119. CAPECITABINE [Suspect]
     Active Substance: CAPECITABINE
     Indication: HER2 positive gastric cancer
     Dosage: 750 MG/M2, ONCE EVERY 3 WK
     Dates: start: 20221122, end: 20221122
  120. CAPECITABINE [Suspect]
     Active Substance: CAPECITABINE
     Indication: HER2 positive gastric cancer
     Dosage: 750 MG/M2, ONCE EVERY 3 WK
     Dates: start: 20221129, end: 20221129
  121. CAPECITABINE [Suspect]
     Active Substance: CAPECITABINE
     Indication: HER2 positive gastric cancer
     Dosage: 500 MG/M2, ONCE EVERY 3 WK
     Dates: start: 20230505, end: 20230505
  122. CAPECITABINE [Suspect]
     Active Substance: CAPECITABINE
     Indication: HER2 positive gastric cancer
     Dosage: 750 MG/M2, ONCE EVERY 3 WK
     Dates: start: 20230118, end: 20230130
  123. CAPECITABINE [Suspect]
     Active Substance: CAPECITABINE
     Indication: HER2 positive gastric cancer
     Dosage: 750 MG/M2, ONCE EVERY 3 WK
     Dates: start: 20230208, end: 20230220
  124. CAPECITABINE [Suspect]
     Active Substance: CAPECITABINE
     Indication: HER2 positive gastric cancer
     Dosage: 750 MG/M2, ONCE EVERY 3 WK
     Dates: start: 20221004, end: 20221004
  125. CAPECITABINE [Suspect]
     Active Substance: CAPECITABINE
     Indication: HER2 positive gastric cancer
     Dosage: 500 MG/M2, ONCE EVERY 3 WK
     Dates: start: 20230616, end: 20230616
  126. CAPECITABINE [Suspect]
     Active Substance: CAPECITABINE
     Indication: HER2 positive gastric cancer
     Dosage: 750 MG/M2, ONCE EVERY 3 WK
     Dates: start: 20220726, end: 20220726
  127. CAPECITABINE [Suspect]
     Active Substance: CAPECITABINE
     Indication: HER2 positive gastric cancer
     Dosage: 500 MG/M2, ONCE EVERY 3 WK
     Dates: start: 20230714, end: 20230714
  128. CAPECITABINE [Suspect]
     Active Substance: CAPECITABINE
     Indication: HER2 positive gastric cancer
     Dosage: 500 MG/M2, ONCE EVERY 3 WK
     Dates: start: 20230422, end: 20230504
  129. CAPECITABINE [Suspect]
     Active Substance: CAPECITABINE
     Indication: HER2 positive gastric cancer
     Dosage: 500 MG/M2, ONCE EVERY 3 WK
     Dates: start: 20230804, end: 20230804
  130. CAPECITABINE [Suspect]
     Active Substance: CAPECITABINE
     Indication: HER2 positive gastric cancer
     Dosage: 750 MG/M2, ONCE EVERY 3 WK
     Dates: start: 20220920, end: 20220920
  131. CAPECITABINE [Suspect]
     Active Substance: CAPECITABINE
     Indication: HER2 positive gastric cancer
     Dosage: 750 MG/M2, ONCE EVERY 3 WK
     Dates: start: 20221019, end: 20221031
  132. CAPECITABINE [Suspect]
     Active Substance: CAPECITABINE
     Indication: HER2 positive gastric cancer
     Dosage: 750 MG/M2, ONCE EVERY 3 WK
     Dates: start: 20220816, end: 20220816
  133. CAPECITABINE [Suspect]
     Active Substance: CAPECITABINE
     Indication: HER2 positive gastric cancer
     Dosage: 750 MG/M2, ONCE EVERY 3 WK
     Dates: start: 20220727, end: 20220808
  134. CAPECITABINE [Suspect]
     Active Substance: CAPECITABINE
     Indication: HER2 positive gastric cancer
     Dosage: 750 MG/M2, ONCE EVERY 3 WK
     Dates: start: 20220809, end: 20220809
  135. CAPECITABINE [Suspect]
     Active Substance: CAPECITABINE
     Indication: HER2 positive gastric cancer
     Dosage: 750 MG/M2, ONCE EVERY 3 WK
     Dates: start: 20220719, end: 20220719
  136. CAPECITABINE [Suspect]
     Active Substance: CAPECITABINE
     Indication: HER2 positive gastric cancer
     Dosage: 750 MG/M2, ONCE EVERY 3 WK
     Dates: start: 20221130, end: 20221212
  137. CAPECITABINE [Suspect]
     Active Substance: CAPECITABINE
     Indication: HER2 positive gastric cancer
     Dosage: 750 MG/M2, ONCE EVERY 3 WK
     Dates: start: 20230207, end: 20230207
  138. CAPECITABINE [Suspect]
     Active Substance: CAPECITABINE
     Indication: HER2 positive gastric cancer
     Dosage: 500 MG/M2, ONCE EVERY 3 WK
     Dates: start: 20230513, end: 20230525
  139. FERROUS FUMARATE [Concomitant]
     Active Substance: FERROUS FUMARATE
     Indication: Anaemia
     Route: 065
     Dates: start: 20230509
  140. RIVAROXABAN [Concomitant]
     Active Substance: RIVAROXABAN
     Indication: Embolism
     Dosage: 20 MG, QD
     Route: 065
     Dates: start: 20230413
  141. HYDROXYZINE HYDROCHLORIDE [Concomitant]
     Active Substance: HYDROXYZINE HYDROCHLORIDE
     Indication: Pruritus
     Dosage: 12.5 MG, QD
     Route: 065
     Dates: start: 20231030

REACTIONS (1)
  - Haematemesis [Not Recovered/Not Resolved]

NARRATIVE: CASE EVENT DATE: 20250210
